FAERS Safety Report 25207271 (Version 1)
Quarter: 2025Q2

REPORT INFORMATION
  Report Type: Report from Study
  Country: CA (occurrence: CA)
  Receive Date: 20250417
  Receipt Date: 20250417
  Transmission Date: 20250716
  Serious: Yes (Death)
  Sender: CSL BEHRING
  Company Number: CA-BEH-2025190818

PATIENT
  Age: 87 Year
  Sex: Female

DRUGS (1)
  1. VELTASSA [Suspect]
     Active Substance: PATIROMER
     Indication: Product used for unknown indication
     Dosage: 16.8 G, OD
     Route: 048
     Dates: start: 20240509

REACTIONS (2)
  - Death [Fatal]
  - Product dose omission in error [Unknown]

NARRATIVE: CASE EVENT DATE: 20240101
